FAERS Safety Report 7874944-2 (Version None)
Quarter: 2011Q4

REPORT INFORMATION
  Report Type: 
  Country: None (occurrence: None)
  Receive Date: 20111031
  Receipt Date: 20111024
  Transmission Date: 20120403
  Serious: Yes (Hospitalization)
  Sender: FDA-Public Use
  Company Number: US-JNJFOC-20111007212

PATIENT
  Sex: Male

DRUGS (2)
  1. DURAGESIC-100 [Suspect]
     Indication: PRODUCT USED FOR UNKNOWN INDICATION
     Route: 062
     Dates: start: 20100201
  2. DURAGESIC-100 [Suspect]
     Route: 062

REACTIONS (5)
  - PRODUCT QUALITY ISSUE [None]
  - DRUG ADMINISTERED AT INAPPROPRIATE SITE [None]
  - HOSPITALISATION [None]
  - WRONG TECHNIQUE IN DRUG USAGE PROCESS [None]
  - PRODUCT ADHESION ISSUE [None]
